FAERS Safety Report 6540858-3 (Version None)
Quarter: 2010Q1

REPORT INFORMATION
  Report Type: 
  Country: None (occurrence: None)
  Receive Date: 20100118
  Receipt Date: 20100107
  Transmission Date: 20100710
  Serious: Yes (Hospitalization)
  Sender: FDA-Public Use
  Company Number: PHHY2010DE01118

PATIENT
  Age: 65 Year
  Sex: Female
  Weight: 42 kg

DRUGS (1)
  1. ACLASTA [Suspect]
     Indication: OSTEOPOROSIS POSTMENOPAUSAL
     Dosage: 5 MG
     Route: 042
     Dates: start: 20090527

REACTIONS (3)
  - EYE PAIN [None]
  - INFLUENZA LIKE ILLNESS [None]
  - RENAL PAIN [None]
